FAERS Safety Report 5274574-5 (Version None)
Quarter: 2007Q1

REPORT INFORMATION
  Report Type: 
  Country: None (occurrence: None)
  Receive Date: 20070323
  Receipt Date: 20070313
  Transmission Date: 20070707
  Serious: Yes (Other)
  Sender: FDA-Public Use
  Company Number: JP-PFIZER INC-2007020710

PATIENT
  Sex: Female

DRUGS (7)
  1. GABAPEN [Suspect]
     Indication: PARTIAL SEIZURES
     Dosage: DAILY DOSE:1200MG
     Route: 048
  2. TEGRETOL [Concomitant]
     Route: 048
  3. EXCEGRAN [Concomitant]
     Route: 048
  4. SOFALCONE [Concomitant]
     Route: 048
  5. ALEVIATIN [Concomitant]
     Route: 048
  6. ARTANE [Concomitant]
     Route: 048
  7. PAXIL [Concomitant]
     Route: 048

REACTIONS (4)
  - ASTHENIA [None]
  - EXCORIATION [None]
  - FALL [None]
  - PARTIAL SEIZURES [None]
